FAERS Safety Report 5638252-2 (Version None)
Quarter: 2008Q1

REPORT INFORMATION
  Report Type: 
  Country: None (occurrence: None)
  Receive Date: 20080131
  Receipt Date: 20071211
  Transmission Date: 20080703
  Serious: No
  Sender: FDA-Public Use
  Company Number: 163-21880-07110068

PATIENT
  Age: 39 Year
  Sex: Male

DRUGS (5)
  1. REVLIMID [Suspect]
     Indication: MULTIPLE MYELOMA
     Dosage: 25 MG, EVERY DAY FOR 21 DAYS EVERY28 DAYS, ORAL
     Route: 048
     Dates: start: 20070906
  2. EFFEXOR [Concomitant]
  3. TESTOSTERONE [Concomitant]
  4. DECADRON [Concomitant]
  5. MARIJUANA (CANNABIS) [Concomitant]

REACTIONS (1)
  - MUSCLE SPASMS [None]
